FAERS Safety Report 10071286 (Version 1)
Quarter: 2014Q2

REPORT INFORMATION
  Report Type: Spontaneous
  Country: PT (occurrence: PT)
  Receive Date: 20140410
  Receipt Date: 20140410
  Transmission Date: 20141212
  Serious: Yes (Death, Hospitalization)
  Sender: FDA-Public Use
  Company Number: PT-ASTELLAS-2014US003717

PATIENT
  Age: 16 Year
  Sex: Male

DRUGS (1)
  1. AMBISOME [Suspect]
     Indication: ASPERGILLUS INFECTION
     Dosage: 350 MG, UID/QD
     Route: 042

REACTIONS (1)
  - Drug ineffective [Fatal]
